FAERS Safety Report 5055344-X (Version None)
Quarter: 2006Q3

REPORT INFORMATION
  Report Type: 
  Country: None (occurrence: None)
  Receive Date: 20060714
  Receipt Date: 20060628
  Transmission Date: 20061208
  Serious: Yes (Other)
  Sender: FDA-Public Use
  Company Number: 2006RR-02838

PATIENT
  Age: 74 Year
  Sex: Male

DRUGS (9)
  1. OMEPRAZOLE [Suspect]
     Indication: MALLORY-WEISS SYNDROME
     Dosage: 20 MG, BID; ORAL
     Route: 048
  2. SIMVASTATIN [Suspect]
     Indication: BLOOD CHOLESTEROL INCREASED
     Dosage: 40 MG,
     Dates: end: 20060510
  3. ADCAL [Concomitant]
  4. BISOPROLOL FUMARATE [Concomitant]
  5. CARBOCYSTEINE [Concomitant]
  6. FUROSEMIDE [Concomitant]
  7. RAMIPRIL [Concomitant]
  8. TEGRETOL [Concomitant]
  9. WARFARIN SODIUM [Concomitant]

REACTIONS (1)
  - ANGIONEUROTIC OEDEMA [None]
